FAERS Safety Report 7206217-5 (Version None)
Quarter: 2011Q1

REPORT INFORMATION
  Report Type: 
  Country: None (occurrence: None)
  Receive Date: 20110103
  Receipt Date: 20101227
  Transmission Date: 20110831
  Serious: Yes (Hospitalization)
  Sender: FDA-Public Use
  Company Number: US-AMGEN-USASP2010008958

PATIENT

DRUGS (1)
  1. ENBREL [Suspect]
     Indication: RHEUMATOID ARTHRITIS
     Dosage: 50 MG, QWK
     Dates: start: 20080215, end: 20101101

REACTIONS (5)
  - PAIN IN EXTREMITY [None]
  - FIBULA FRACTURE [None]
  - FALL [None]
  - RHEUMATOID ARTHRITIS [None]
  - TIBIA FRACTURE [None]
